FAERS Safety Report 9775555 (Version 2)
Quarter: 2014Q1

REPORT INFORMATION
  Report Type: Spontaneous
  Country: US (occurrence: US)
  Receive Date: 20131220
  Receipt Date: 20140318
  Transmission Date: 20141002
  Serious: No
  Sender: FDA-Public Use
  Company Number: US-GALDERMA-US13003726

PATIENT
  Age: 51 Year
  Sex: Female

DRUGS (5)
  1. MIRVASO (BRIMONIDINE) TOPICAL GEL, 0.33% [Suspect]
     Indication: ROSACEA
     Dosage: 0.33%
     Route: 061
     Dates: start: 20131010, end: 20131019
  2. ACIPHEX [Concomitant]
  3. YAZ [Concomitant]
  4. CYTOMEL [Concomitant]
  5. LEVOXYL [Concomitant]

REACTIONS (10)
  - Rebound effect [Recovering/Resolving]
  - Condition aggravated [Recovering/Resolving]
  - Rash macular [Recovering/Resolving]
  - Rash papular [Recovering/Resolving]
  - Telangiectasia [Recovering/Resolving]
  - Feeling hot [Recovering/Resolving]
  - Flushing [Recovering/Resolving]
  - Erythema [Recovered/Resolved]
  - Skin burning sensation [Recovering/Resolving]
  - Drug effect decreased [Recovered/Resolved]
